FAERS Safety Report 9673000 (Version 1)
Quarter: 2013Q4

REPORT INFORMATION
  Report Type: Spontaneous
  Country: US (occurrence: US)
  Receive Date: 20131106
  Receipt Date: 20131106
  Transmission Date: 20140711
  Serious: No
  Sender: FDA-Public Use
  Company Number: US-AMGEN-USASP2013070125

PATIENT
  Age: 29 Year
  Sex: Male

DRUGS (1)
  1. ENBREL [Suspect]
     Indication: PSORIASIS
     Dosage: 50 MG, QWK
     Route: 065

REACTIONS (7)
  - Flushing [Unknown]
  - Hyperhidrosis [Unknown]
  - Anxiety [Unknown]
  - Feeling hot [Unknown]
  - Haematocrit abnormal [Unknown]
  - Haemoglobin increased [Unknown]
  - White blood cell count abnormal [Unknown]
